FAERS Safety Report 17725869 (Version 1)
Quarter: 2020Q2

REPORT INFORMATION
  Report Type: Spontaneous
  Country: US (occurrence: US)
  Receive Date: 20200429
  Receipt Date: 20200429
  Transmission Date: 20200714
  Serious: No
  Sender: FDA-Public Use
  Company Number: US-ALNYLAM PHARMACEUTICALS, INC.-ALN-2020-000565

PATIENT
  Sex: Female

DRUGS (1)
  1. GIVLAARI [Suspect]
     Active Substance: GIVOSIRAN SODIUM
     Indication: PORPHYRIA ACUTE
     Route: 058

REACTIONS (10)
  - Dry mouth [Unknown]
  - Dizziness [Unknown]
  - Bedridden [Unknown]
  - Insomnia [Unknown]
  - Injection site pruritus [Unknown]
  - Dysgeusia [Unknown]
  - Gastrooesophageal reflux disease [Unknown]
  - Nausea [Unknown]
  - Injection site pain [Unknown]
  - Fatigue [Unknown]
